FAERS Safety Report 4816074-X (Version None)
Quarter: 2005Q4

REPORT INFORMATION
  Report Type: 
  Country: None (occurrence: None)
  Receive Date: 20051026
  Receipt Date: 20051020
  Transmission Date: 20060501
  Serious: Yes (Death, Hospitalization)
  Sender: FDA-Public Use
  Company Number: 2005US001514

PATIENT
  Age: 73 Year
  Sex: Male

DRUGS (23)
  1. PROGRAF [Suspect]
     Indication: PROPHYLAXIS AGAINST TRANSPLANT REJECTION
     Dosage: 1.00MG, BID, ORAL
     Route: 048
     Dates: start: 20050109
  2. MYCOPHENOLATE MOFETIL (MYCOPHENOLATE MOFETIL) [Suspect]
     Indication: PROPHYLAXIS AGAINST TRANSPLANT REJECTION
     Dosage: 1500.00MG, BID, ORAL
     Route: 048
     Dates: start: 20050108
  3. CORTICOSTEROIDS (CORTICOSTEROIDS) [Suspect]
     Indication: PROPHYLAXIS AGAINST TRANSPLANT REJECTION
  4. LOPRESSOR [Concomitant]
  5. LASIX [Concomitant]
  6. AMIODARONE HCL [Concomitant]
  7. RENAGEL [Concomitant]
  8. COLCHICINE (COLCHICINE) [Concomitant]
  9. VALCYTE [Concomitant]
  10. BACTRIM [Concomitant]
  11. FOLIC ACID [Concomitant]
  12. MULTIVITAMIN (ERGOCALCIFEROL, ASCORBIC ACID, PANTHENOL, NICOTINAMIDE, [Concomitant]
  13. PRILOSEC [Concomitant]
  14. ERYTHROPOIETIN (ERYTHROPOIETIN) [Concomitant]
  15. ARANESP [Concomitant]
  16. ALBUTEROL [Concomitant]
  17. NOVOLIN N [Concomitant]
  18. ASPIRIN [Concomitant]
  19. PLAVIX [Concomitant]
  20. MYCOSTATIN [Concomitant]
  21. K-DUR 10 [Concomitant]
  22. FLAGYL [Concomitant]
  23. LEVAQUIN [Concomitant]

REACTIONS (5)
  - BACTERAEMIA [None]
  - CARDIOGENIC SHOCK [None]
  - ENDOCARDITIS [None]
  - MYOCARDIAC ABSCESS [None]
  - SEPSIS [None]
